FAERS Safety Report 24909088 (Version 3)
Quarter: 2025Q3

REPORT INFORMATION
  Report Type: Report from Study
  Country: US (occurrence: US)
  Receive Date: 20250131
  Receipt Date: 20250924
  Transmission Date: 20251020
  Serious: Yes (Other)
  Sender: ACADIA PHARMACEUTICALS
  Company Number: US-ACADIA PHARMACEUTICALS INC.-ACA-2025-PIM-000941

PATIENT

DRUGS (20)
  1. NUPLAZID [Suspect]
     Active Substance: PIMAVANSERIN TARTRATE
     Indication: Parkinson^s disease psychosis
     Dosage: 34 MILLIGRAM, QD
     Route: 048
     Dates: start: 20240520
  2. SEROQUEL [Concomitant]
     Active Substance: QUETIAPINE FUMARATE
     Dosage: TAKE 1 TABLET (25 MG TOTAL) BY MOUTH DAILY AS NEEDED.
     Route: 048
     Dates: start: 20250620
  3. BUSPAR [Concomitant]
     Active Substance: BUSPIRONE HYDROCHLORIDE
     Dosage: 1 TABLET (10 MG TOTAL) BY MOUTH 3 (THREE) TIMES DAILY.
     Route: 048
     Dates: start: 20240529
  4. PEPCID [Concomitant]
     Active Substance: FAMOTIDINE
     Dosage: TAKE 1 TABLET (20 MG TOTAL) BY MOUTH 2 (TWO) TIMES DAILY.
     Route: 048
     Dates: start: 20220405
  5. PROSCAR [Concomitant]
     Active Substance: FINASTERIDE
     Dosage: TAKE 1 TABLET (5 MG TOTAL) BY MOUTH NIGHTLY.
     Route: 048
     Dates: start: 20231215
  6. FLONASE [Concomitant]
     Active Substance: FLUTICASONE PROPIONATE
     Dosage: 1 NASAL SPRAY, QD
     Route: 045
  7. FOLIC ACID [Concomitant]
     Active Substance: FOLIC ACID
     Dosage: 1 DOSAGE FORM, QD
     Route: 048
  8. HYDROCORTISONE [Concomitant]
     Active Substance: HYDROCORTISONE
  9. SYNTHROID [Concomitant]
     Active Substance: LEVOTHYROXINE SODIUM
     Dosage: TAKE 1 TABLET (100 MCG TOTAL) BY MOUTH ONCE DAILY.
     Route: 048
     Dates: start: 20220110
  10. NAMENDA [Concomitant]
     Active Substance: MEMANTINE HYDROCHLORIDE
     Dosage: TAKE 1 TABLET (5 MG TOTAL) BY MOUTH DAILY.
     Route: 048
     Dates: start: 20250212
  11. PROAMATINE [Concomitant]
     Active Substance: MIDODRINE HYDROCHLORIDE
     Dates: start: 20241127
  12. ZOFRAN [Concomitant]
     Active Substance: ONDANSETRON HYDROCHLORIDE
     Indication: Nausea
     Dosage: TAKE 1 TABLET BY MOUTH EVERY 8 HOURS AS NEEDED FOR NAUSEA
     Route: 048
  13. MIRALAX [Concomitant]
     Active Substance: POLYETHYLENE GLYCOL 3350
     Dosage: TAKE 17 G BY MOUTH ONCE DAILY.
     Route: 048
  14. EXELON [Concomitant]
     Active Substance: RIVASTIGMINE TARTRATE
     Dosage: 13.3 MG/24 HOUR: PLACE 1 PATCH ONTO THE SKIN DAILY.
     Route: 062
     Dates: start: 20241220
  15. ZOLOFT [Concomitant]
     Active Substance: SERTRALINE HYDROCHLORIDE
     Dosage: 3 TABLETS (75 MG TOTAL) BY G-TUBE ROUTE DAILY.
     Dates: start: 20250328
  16. GEMTESA [Concomitant]
     Active Substance: VIBEGRON
     Dosage: TAKE 1 TABLET (75 MG TOTAL) BY MOUTH ONCE DAILY.
     Route: 048
     Dates: start: 20220426
  17. ROBINUL [Concomitant]
     Active Substance: GLYCOPYRROLATE
     Indication: Drooling
  18. LODOSYN [Concomitant]
     Active Substance: CARBIDOPA
     Dosage: 1 TABLET (25 MG TOTAL) BY G-TUBE ROUTE 3 (THREE) TIMES DAILY.
  19. SINEMET [Concomitant]
     Active Substance: CARBIDOPA\LEVODOPA
     Dosage: TAKE 1 TABLET BY MOUTH 3 (THREE) TIMES DAILY.
     Route: 048
  20. NYSTATIN [Concomitant]
     Active Substance: NYSTATIN
     Route: 048

REACTIONS (5)
  - Dementia with Lewy bodies [Not Recovered/Not Resolved]
  - Anxiety [Unknown]
  - Orthostatic hypotension [Unknown]
  - Salivary hypersecretion [Unknown]
  - Agitation [Unknown]
